FAERS Safety Report 9366530 (Version 1)
Quarter: 2013Q2

REPORT INFORMATION
  Report Type: Spontaneous
  Country: US (occurrence: US)
  Receive Date: 20130625
  Receipt Date: 20130625
  Transmission Date: 20140414
  Serious: Yes (Death)
  Sender: FDA-Public Use
  Company Number: US-MYLANLABS-2013S1013295

PATIENT
  Age: 10 Year
  Sex: Female
  Weight: 45 kg

DRUGS (4)
  1. PARACETAMOL CODEINE [Suspect]
     Indication: PAIN
     Dosage: 12MG CODEINE/120MG PARACETAMOL PER 5ML; 20-40MG OF CODEINE EVERY 4 HOURS AS NEEDED
     Route: 048
  2. DIAZEPAM [Suspect]
     Indication: MUSCLE SPASMS
     Dosage: 2-4MG EVERY 4 HOURS AS NEEDED
     Route: 048
  3. BUDESONIDE [Concomitant]
     Dosage: DAILY
     Route: 055
  4. MULTIVITAMIN [Concomitant]
     Dosage: DAILY
     Route: 065

REACTIONS (2)
  - Toxicity to various agents [Fatal]
  - Death [Fatal]
